FAERS Safety Report 9562553 (Version 1)
Quarter: 2013Q3

REPORT INFORMATION
  Report Type: Spontaneous
  Country: US (occurrence: US)
  Receive Date: 20130927
  Receipt Date: 20130927
  Transmission Date: 20140515
  Serious: No
  Sender: FDA-Public Use
  Company Number: US-TEVA-432762USA

PATIENT
  Age: 50 Year
  Sex: Female
  Weight: 95.34 kg

DRUGS (1)
  1. PARAGARD 380A [Suspect]
     Indication: CONTRACEPTION
     Route: 015
     Dates: start: 1997, end: 20130912

REACTIONS (3)
  - Metrorrhagia [Not Recovered/Not Resolved]
  - Vaginal discharge [Recovered/Resolved]
  - Inappropriate schedule of drug administration [Unknown]
